FAERS Safety Report 4361833-3 (Version None)
Quarter: 2004Q2

REPORT INFORMATION
  Report Type: 
  Country: None (occurrence: None)
  Receive Date: 20040521
  Receipt Date: 20040322
  Transmission Date: 20050107
  Serious: No
  Sender: FDA-Public Use
  Company Number: US-GLAXOSMITHKLINE-A0503859A

PATIENT
  Sex: Female

DRUGS (2)
  1. WELLBUTRIN XL [Suspect]
     Indication: DEPRESSION
     Dosage: 300MG PER DAY
     Route: 048
  2. ASTHMA MEDICATION [Concomitant]

REACTIONS (9)
  - CHILLS [None]
  - DIARRHOEA [None]
  - INFLUENZA LIKE ILLNESS [None]
  - ORAL MUCOSAL BLISTERING [None]
  - PAIN [None]
  - PYREXIA [None]
  - RASH [None]
  - SWELLING FACE [None]
  - TONGUE DISORDER [None]
